FAERS Safety Report 18386650 (Version 2)
Quarter: 2020Q4

REPORT INFORMATION
  Report Type: Spontaneous
  Country: US (occurrence: US)
  Receive Date: 20201015
  Receipt Date: 20201031
  Transmission Date: 20210114
  Serious: Yes (Other)
  Sender: FDA-Public Use
  Company Number: US-TEVA-2020-US-1839276

PATIENT
  Age: 49 Year
  Sex: Female

DRUGS (1)
  1. ACITRETIN. [Suspect]
     Active Substance: ACITRETIN
     Indication: KERATOSIS FOLLICULAR
     Dosage: 10 MILLIGRAM DAILY; 10 MG, QD
     Route: 048

REACTIONS (2)
  - Idiopathic intracranial hypertension [Unknown]
  - Keratosis follicular [Unknown]
